FAERS Safety Report 13839795 (Version 1)
Quarter: 2017Q3

REPORT INFORMATION
  Report Type: Spontaneous
  Country: FR (occurrence: FR)
  Receive Date: 20170807
  Receipt Date: 20170807
  Transmission Date: 20171127
  Serious: Yes (Other)
  Sender: FDA-Public Use
  Company Number: FR-BAYER-2017-145072

PATIENT
  Age: 1 Month
  Sex: Male

DRUGS (2)
  1. ACETYLSALICYLIC ACID({=100 MG) [Suspect]
     Active Substance: ASPIRIN
     Indication: HAEMANGIOMA
     Dosage: 30 MG, QD
  2. PREDNISOLONE. [Concomitant]
     Active Substance: PREDNISOLONE
     Dosage: 10 MG, QD 10 MG/KG/DAY,
     Route: 048

REACTIONS (5)
  - Subarachnoid haemorrhage [None]
  - Off label use [None]
  - Subdural haematoma [None]
  - Drug administered to patient of inappropriate age [None]
  - Disseminated intravascular coagulation [Recovered/Resolved]
